FAERS Safety Report 11049082 (Version 7)
Quarter: 2017Q2

REPORT INFORMATION
  Report Type: Spontaneous
  Country: US (occurrence: US)
  Receive Date: 20150420
  Receipt Date: 20170419
  Transmission Date: 20170829
  Serious: Yes (Other)
  Sender: FDA-Public Use
  Company Number: US-ELI_LILLY_AND_COMPANY-US201504003844

PATIENT
  Age: 55 Year
  Sex: Female
  Weight: 58.96 kg

DRUGS (8)
  1. ADCIRCA [Suspect]
     Active Substance: TADALAFIL
     Indication: PULMONARY HYPERTENSION
     Dosage: 20 MG, BID
     Route: 048
     Dates: start: 201407
  2. ADEMPAS [Concomitant]
     Active Substance: RIOCIGUAT
     Dosage: UNK, UNKNOWN
     Route: 065
  3. LETAIRIS [Suspect]
     Active Substance: AMBRISENTAN
     Dosage: 10 MG, QD
     Route: 048
  4. TYVASO [Suspect]
     Active Substance: TREPROSTINIL
     Dosage: 0.6 MG/ML, 3-9 BREATHS, QID
     Route: 055
  5. LETAIRIS [Suspect]
     Active Substance: AMBRISENTAN
     Indication: PULMONARY ARTERIAL HYPERTENSION
     Dosage: 5 MG, QD
     Route: 048
     Dates: start: 20140717
  6. TYVASO [Suspect]
     Active Substance: TREPROSTINIL
     Dosage: 0.6 MG/ML, 3-4 BREATHS, QID
     Route: 055
     Dates: start: 20170222
  7. TYVASO [Suspect]
     Active Substance: TREPROSTINIL
     Indication: PULMONARY ARTERIAL HYPERTENSION
     Dosage: 0.6 MG/ML, 3-4 BREATHS, QID
     Route: 055
     Dates: start: 20140710
  8. OXYGEN. [Concomitant]
     Active Substance: OXYGEN
     Dosage: UNK, UNKNOWN
     Route: 065

REACTIONS (22)
  - Glaucoma [Recovered/Resolved]
  - Optic nerve injury [Unknown]
  - Vomiting [Recovered/Resolved]
  - Gait disturbance [Unknown]
  - Headache [Not Recovered/Not Resolved]
  - Nausea [Recovered/Resolved]
  - Pneumonia [Recovered/Resolved]
  - Scleroderma [Unknown]
  - Hypertension [Recovered/Resolved]
  - Asthenia [Not Recovered/Not Resolved]
  - Blindness [Unknown]
  - Weight fluctuation [Unknown]
  - Fatigue [Not Recovered/Not Resolved]
  - Limb injury [Recovered/Resolved]
  - Eye pain [Not Recovered/Not Resolved]
  - Dyspnoea [Recovered/Resolved]
  - Memory impairment [Unknown]
  - Stress [Unknown]
  - Presyncope [Recovered/Resolved]
  - Deafness [Not Recovered/Not Resolved]
  - Fall [Unknown]
  - Retching [Unknown]

NARRATIVE: CASE EVENT DATE: 20161029
